FAERS Safety Report 6146095-9 (Version None)
Quarter: 2009Q2

REPORT INFORMATION
  Report Type: 
  Country: None (occurrence: None)
  Receive Date: 20090403
  Receipt Date: 20090318
  Transmission Date: 20091009
  Serious: Yes (Hospitalization)
  Sender: FDA-Public Use
  Company Number: 8044356

PATIENT
  Age: 9 Year
  Sex: Male

DRUGS (12)
  1. PREDNISOLONE [Suspect]
     Indication: LIVER TRANSPLANT
  2. PREDNISOLONE [Suspect]
     Indication: PROPHYLAXIS AGAINST TRANSPLANT REJECTION
  3. AVACAVIR [Suspect]
  4. CO-TRIMOXAZOLE [Suspect]
  5. DIDANOSINE [Suspect]
  6. EFAVIRENZ [Suspect]
  7. LAMIVUDINE [Concomitant]
  8. MYCOPHENOLATE MOFETIL [Suspect]
     Indication: PROPHYLAXIS AGAINST TRANSPLANT REJECTION
  9. NELFINAVIR [Suspect]
  10. RALTEGRAVIR [Suspect]
     Indication: PROPHYLAXIS AGAINST TRANSPLANT REJECTION
  11. SIROLIMUS [Suspect]
     Indication: PROPHYLAXIS AGAINST TRANSPLANT REJECTION
  12. ZIDOVUDINE [Suspect]

REACTIONS (20)
  - ACUTE HEPATIC FAILURE [None]
  - BLOOD HIV RNA INCREASED [None]
  - BLOOD IMMUNOGLOBULIN E INCREASED [None]
  - CD4 LYMPHOCYTES DECREASED [None]
  - CHOLESTASIS [None]
  - DRUG TOXICITY [None]
  - GRAFT DYSFUNCTION [None]
  - HEPATIC ENCEPHALOPATHY [None]
  - HEPATIC NECROSIS [None]
  - HEPATITIS [None]
  - HEPATOMEGALY [None]
  - HYPERLIPIDAEMIA [None]
  - HYPERTENSION [None]
  - LIVER TRANSPLANT [None]
  - LIVER TRANSPLANT REJECTION [None]
  - LYMPHADENOPATHY [None]
  - MYOPATHY [None]
  - PHARYNGITIS [None]
  - RASH [None]
  - RENAL IMPAIRMENT [None]
